FAERS Safety Report 16183640 (Version 2)
Quarter: 2019Q2

REPORT INFORMATION
  Report Type: Spontaneous
  Country: US (occurrence: US)
  Receive Date: 20190411
  Receipt Date: 20190531
  Transmission Date: 20190711
  Serious: Yes (Hospitalization)
  Sender: FDA-Public Use
  Company Number: US-IPSEN BIOPHARMACEUTICALS, INC.-2019-05449

PATIENT
  Sex: Male

DRUGS (2)
  1. MAVYRET [Concomitant]
     Active Substance: GLECAPREVIR\PIBRENTASVIR
  2. DYSPORT [Suspect]
     Active Substance: ABOBOTULINUMTOXINA
     Indication: MULTIPLE SCLEROSIS
     Dosage: EVERY 3-4 MONTHS AS DIRECTED (1 VIAL INJECTION)
     Route: 030
     Dates: start: 20190306, end: 20190306

REACTIONS (1)
  - Hospitalisation [Unknown]
